FAERS Safety Report 11249951 (Version 1)
Quarter: 2015Q3

REPORT INFORMATION
  Report Type: Spontaneous
  Country: US (occurrence: US)
  Receive Date: 20150708
  Receipt Date: 20150708
  Transmission Date: 20151125
  Serious: Yes (Other)
  Sender: FDA-Public Use
  Company Number: US-ELI_LILLY_AND_COMPANY-US201003001425

PATIENT
  Sex: Female

DRUGS (2)
  1. COUMADIN [Interacting]
     Active Substance: WARFARIN SODIUM
  2. SYMBYAX [Suspect]
     Active Substance: FLUOXETINE HYDROCHLORIDE\OLANZAPINE
     Dates: end: 20100225

REACTIONS (3)
  - Haemorrhage intracranial [Unknown]
  - Balance disorder [Unknown]
  - Drug interaction [Unknown]
